FAERS Safety Report 10736808 (Version 1)
Quarter: 2015Q1

REPORT INFORMATION
  Report Type: Spontaneous
  Country: US (occurrence: None)
  Receive Date: 20150123
  Receipt Date: 20150123
  Transmission Date: 20150721
  Serious: No
  Sender: FDA-Public Use
  Company Number: None

PATIENT
  Age: 47 Year
  Sex: Female

DRUGS (1)
  1. COPAXONE [Suspect]
     Active Substance: GLATIRAMER ACETATE
     Indication: MULTIPLE SCLEROSIS
     Dosage: SQ
     Route: 058
     Dates: start: 20130912, end: 20141231

REACTIONS (2)
  - Injection site urticaria [None]
  - Injection site vesicles [None]

NARRATIVE: CASE EVENT DATE: 20141230
